FAERS Safety Report 24353199 (Version 2)
Quarter: 2024Q3

REPORT INFORMATION
  Report Type: Spontaneous
  Country: BR (occurrence: BR)
  Receive Date: 20240923
  Receipt Date: 20240924
  Transmission Date: 20241017
  Serious: Yes (Death, Hospitalization, Other)
  Sender: GENMAB
  Company Number: BR-ABBVIE-5906938

PATIENT
  Sex: Male

DRUGS (1)
  1. EPCORITAMAB [Suspect]
     Active Substance: EPCORITAMAB
     Indication: Product used for unknown indication
     Dosage: UNK (RECEIVED DOSES C1D1 AND C1D8 AT THE CLINIC WITHOUT ANY ADVERSE EVENTS)
     Route: 058

REACTIONS (2)
  - Disease progression [Fatal]
  - Pneumonia [Unknown]
